FAERS Safety Report 5383310-3 (Version None)
Quarter: 2007Q3

REPORT INFORMATION
  Report Type: 
  Country: None (occurrence: None)
  Receive Date: 20070710
  Receipt Date: 20070629
  Transmission Date: 20080115
  Serious: Yes (Hospitalization)
  Sender: FDA-Public Use
  Company Number: IN-PFIZER INC-2007050341

PATIENT
  Sex: Male
  Weight: 58 kg

DRUGS (8)
  1. SU-011,248 [Suspect]
     Indication: METASTATIC RENAL CELL CARCINOMA
     Route: 048
  2. AMLOPRES [Concomitant]
     Route: 048
  3. EPTOIN [Concomitant]
     Route: 048
     Dates: start: 20070404, end: 20070612
  4. EPTOIN [Concomitant]
     Route: 048
  5. FERRANIN COMPLEX [Concomitant]
     Route: 048
  6. PROTEIN SUPPLEMENTS [Concomitant]
     Route: 048
  7. BECOSULES CAPSULE [Concomitant]
     Route: 048
  8. DUPHALAC [Concomitant]
     Route: 048

REACTIONS (2)
  - ABDOMINAL PAIN [None]
  - HAEMATURIA [None]
